FAERS Safety Report 6223394-3 (Version None)
Quarter: 2009Q2

REPORT INFORMATION
  Report Type: 
  Country: None (occurrence: None)
  Receive Date: 20090609
  Receipt Date: 20090526
  Transmission Date: 20091009
  Serious: Yes (Hospitalization)
  Sender: FDA-Public Use
  Company Number: 1000006555

PATIENT
  Age: 69 Year
  Sex: Female

DRUGS (31)
  1. MILNACIPRAN         (MILNACIPRAN HYDROCHLORIDE) (TABLETS) [Suspect]
     Indication: DYSTHYMIC DISORDER
     Dosage: 75 MG, ORAL
     Route: 048
  2. WINTERMIN [Suspect]
     Indication: DYSTHYMIC DISORDER
     Dosage: 0.15 GM, ORAL
     Route: 048
  3. CONSTAN [Suspect]
     Indication: DYSTHYMIC DISORDER
     Dosage: 1.2 MG, ORAL
     Route: 048
  4. DEPAKENE [Suspect]
     Indication: INSOMNIA
     Dosage: 200 MG, ORAL
     Route: 048
  5. PARULEON [Suspect]
     Indication: INSOMNIA
     Dosage: 0.25 MG, ORAL
     Route: 048
  6. ZOLPIDEM TARTRATE [Suspect]
     Indication: INSOMNIA
     Dosage: 10 MG, ORAL
     Route: 048
  7. VEGETAMIN B [Suspect]
     Indication: INSOMNIA
     Dosage: 1 DOSAGE FORMS, ORAL
     Route: 048
  8. ELCATONIN [Concomitant]
  9. CELECOXIB [Concomitant]
  10. ALDIOXA [Concomitant]
  11. TIZANIDINE HYDROCHLORIDE [Concomitant]
  12. DICLOFENAC SODIUM [Concomitant]
  13. KETOPROFEN [Concomitant]
  14. KETOPROFEN [Concomitant]
  15. MAGNESIUM OXIDE [Concomitant]
  16. PANTETHINE [Concomitant]
  17. SENNOSIDE [Concomitant]
  18. LIMAPROST [Concomitant]
  19. HYALURONATE SODIUM [Concomitant]
  20. BETAMETHASONE VALERATE [Concomitant]
  21. GENTAMICIN [Concomitant]
  22. MIXED KILLED BACTERIA PREPARATIONS [Concomitant]
  23. BAKUMONDO TO [Concomitant]
  24. NIFEDIPINE [Concomitant]
  25. DILTIAZEM HYDROCHLORIDE [Concomitant]
  26. RABEPRAZOLE SODIUM [Concomitant]
  27. ISOSORBIDE DI NITRATE [Concomitant]
  28. ALUMINIUM HYDROXIDE WITH MAGNESIUM HYDROXIDE [Concomitant]
  29. CLOSTRIDIUM BUTYRICUM [Concomitant]
  30. PANCREATIC ENZYMES [Concomitant]
  31. SODIUM GUALENATE [Concomitant]

REACTIONS (11)
  - ANTIBODY TEST POSITIVE [None]
  - DECREASED APPETITE [None]
  - GASTROOESOPHAGEAL REFLUX DISEASE [None]
  - HAEMOPTYSIS [None]
  - INSOMNIA [None]
  - OEDEMA PERIPHERAL [None]
  - PNEUMOCOCCAL INFECTION [None]
  - PNEUMONIA ASPIRATION [None]
  - SOMNOLENCE [None]
  - URINARY INCONTINENCE [None]
  - VOMITING [None]
